FAERS Safety Report 4700763-1 (Version None)
Quarter: 2005Q2

REPORT INFORMATION
  Report Type: 
  Country: None (occurrence: None)
  Receive Date: 20050624
  Receipt Date: 20040618
  Transmission Date: 20051028
  Serious: Yes (Death, Hospitalization)
  Sender: FDA-Public Use
  Company Number: 371586

PATIENT
  Age: 84 Year
  Sex: Female
  Weight: 73 kg

DRUGS (3)
  1. XELODA [Suspect]
     Indication: BREAST CANCER
     Dosage: 1500 MG 2 PER DAY ORAL
     Route: 048
     Dates: start: 20040401, end: 20040527
  2. XELODA [Suspect]
     Indication: COLON CANCER
     Dosage: 1500 MG 2 PER DAY ORAL
     Route: 048
     Dates: start: 20040401, end: 20040527
  3. XELODA [Suspect]
     Indication: COLON CANCER METASTATIC
     Dosage: 1500 MG 2 PER DAY ORAL
     Route: 048
     Dates: start: 20040401, end: 20040527

REACTIONS (12)
  - ASTHENIA [None]
  - BLOOD PRESSURE INCREASED [None]
  - BREAST CANCER METASTATIC [None]
  - DECREASED APPETITE [None]
  - DEHYDRATION [None]
  - DIARRHOEA [None]
  - METASTASES TO LUNG [None]
  - MUCOUS MEMBRANE DISORDER [None]
  - NAUSEA [None]
  - SKIN DISORDER [None]
  - SKIN TURGOR DECREASED [None]
  - WEIGHT DECREASED [None]
